FAERS Safety Report 10151853 (Version 1)
Quarter: 2014Q2

REPORT INFORMATION
  Report Type: Report from Study
  Country: US (occurrence: US)
  Receive Date: 20140505
  Receipt Date: 20140505
  Transmission Date: 20141212
  Serious: No
  Sender: FDA-Public Use
  Company Number: US-009507513-1405USA000854

PATIENT
  Age: 30 Year
  Sex: Female

DRUGS (2)
  1. CLARITIN [Suspect]
     Dosage: ONE TABLET
     Route: 048
     Dates: start: 20140325
  2. HUMIRA [Suspect]
     Indication: CROHN^S DISEASE
     Dosage: UNK
     Route: 065
     Dates: start: 20130820

REACTIONS (7)
  - Sneezing [Unknown]
  - Drug ineffective [Unknown]
  - Rhinorrhoea [Unknown]
  - Lacrimation increased [Unknown]
  - Nasal congestion [Unknown]
  - Dyspnoea [Unknown]
  - Pyrexia [Unknown]
